FAERS Safety Report 6429360-7 (Version None)
Quarter: 2009Q4

REPORT INFORMATION
  Report Type: 
  Country: None (occurrence: None)
  Receive Date: 20091105
  Receipt Date: 20090416
  Transmission Date: 20100525
  Serious: No
  Sender: FDA-Public Use
  Company Number: US-ABBOTT-09P-163-0568968-00

PATIENT
  Sex: Male
  Weight: 113.5 kg

DRUGS (6)
  1. KALETRA [Suspect]
     Indication: HIV INFECTION
     Route: 048
     Dates: start: 20081003
  2. COMBIVIR [Concomitant]
     Indication: HIV INFECTION
  3. PAXIL [Concomitant]
     Indication: POST-TRAUMATIC STRESS DISORDER
  4. METOPROLOL [Concomitant]
     Indication: HYPERTENSION
  5. MULTI-VITAMIN [Concomitant]
     Indication: DRUG USE FOR UNKNOWN INDICATION
  6. BACTRIM [Concomitant]
     Indication: PNEUMONIA

REACTIONS (6)
  - ABDOMINAL DISTENSION [None]
  - DIARRHOEA [None]
  - DYSPNOEA [None]
  - FLATULENCE [None]
  - HYPOVENTILATION [None]
  - NAUSEA [None]
